FAERS Safety Report 20773296 (Version 1)
Quarter: 2022Q2

REPORT INFORMATION
  Report Type: Spontaneous
  Country: US (occurrence: US)
  Receive Date: 20220502
  Receipt Date: 20220502
  Transmission Date: 20220721
  Serious: No
  Sender: FDA-Public Use
  Company Number: US-MAYNE PHARMA-2021MYN000584

PATIENT
  Age: 61 Year
  Sex: Female

DRUGS (1)
  1. FLUOROURACIL [Suspect]
     Active Substance: FLUOROURACIL
     Indication: Skin papilloma
     Dosage: UNK UNK, QD
     Route: 003
     Dates: start: 20210831, end: 20210927

REACTIONS (3)
  - Application site pain [Unknown]
  - Skin discolouration [Unknown]
  - Nail bed disorder [Unknown]

NARRATIVE: CASE EVENT DATE: 20210927
